FAERS Safety Report 5278167-5 (Version None)
Quarter: 2007Q1

REPORT INFORMATION
  Report Type: 
  Country: None (occurrence: None)
  Receive Date: 20061213
  Receipt Date: 20060309
  Transmission Date: 20070707
  Serious: Yes (Hospitalization)
  Sender: FDA-Public Use
  Company Number: 2006UW04027

PATIENT
  Age: 53 Year
  Sex: Male
  Weight: 79.378 kg

DRUGS (11)
  1. SEROQUEL [Suspect]
     Indication: BIPOLAR DISORDER
     Dosage: 300 MG PO
     Route: 048
  2. PLAVIX [Concomitant]
  3. LOPRESSOR [Concomitant]
  4. ASPIRIN [Concomitant]
  5. VITAMIN E [Concomitant]
  6. SEREVENT [Concomitant]
  7. ALBUTEROL [Concomitant]
  8. ALLEGRA D 24 HOUR [Concomitant]
  9. POTASSIUM ACETATE [Concomitant]
  10. VITAMIN B-12 [Concomitant]
  11. NEXIUM [Concomitant]

REACTIONS (1)
  - CONVULSION [None]
